FAERS Safety Report 18036298 (Version 1)
Quarter: 2020Q3

REPORT INFORMATION
  Report Type: Spontaneous
  Country: US (occurrence: US)
  Receive Date: 20200717
  Receipt Date: 20200717
  Transmission Date: 20201103
  Serious: Yes (Other)
  Sender: FDA-Public Use
  Company Number: None

PATIENT
  Age: 66 Year
  Sex: Female
  Weight: 125.8 kg

DRUGS (15)
  1. DEXTROMETHORPHAN?GUAIFENESIN [Concomitant]
     Active Substance: DEXTROMETHORPHAN\GUAIFENESIN
  2. DICLOFENAC POTASSIUM. [Concomitant]
     Active Substance: DICLOFENAC POTASSIUM
  3. CEII RIZI NE [Concomitant]
  4. DULOXETINE. [Concomitant]
     Active Substance: DULOXETINE
  5. FISH OIL [Concomitant]
     Active Substance: FISH OIL
  6. ASPIRIN. [Concomitant]
     Active Substance: ASPIRIN
  7. CALCIUM + VITAMIN D [Concomitant]
     Active Substance: CALCIUM\VITAMIN D
  8. \FICTOZA [Concomitant]
  9. METFORMIN [Concomitant]
     Active Substance: METFORMIN HYDROCHLORIDE
  10. AMLODIPINE [Concomitant]
     Active Substance: AMLODIPINE BESYLATE
  11. ATENOLOL. [Concomitant]
     Active Substance: ATENOLOL
  12. LISINOPN^L [Concomitant]
  13. TYMLOS [Suspect]
     Active Substance: ABALOPARATIDE
     Indication: OSTEOPOROSIS
     Route: 058
     Dates: start: 20200623, end: 20200626
  14. VITAMIN 812 [Concomitant]
  15. ROSUVASTATIN. [Concomitant]
     Active Substance: ROSUVASTATIN

REACTIONS (8)
  - Night sweats [None]
  - Headache [None]
  - Pyrexia [None]
  - Nausea [None]
  - Back pain [None]
  - Dizziness [None]
  - Insomnia [None]
  - Arthralgia [None]

NARRATIVE: CASE EVENT DATE: 20200623
